FAERS Safety Report 6813635-3 (Version None)
Quarter: 2010Q3

REPORT INFORMATION
  Report Type: 
  Country: None (occurrence: None)
  Receive Date: 20100701
  Receipt Date: 20100629
  Transmission Date: 20110219
  Serious: Yes (Other)
  Sender: FDA-Public Use
  Company Number: US-BAXTER-2010BH017274

PATIENT
  Age: 26 Year
  Sex: Female

DRUGS (5)
  1. NAFCILLIN SODIUM [Suspect]
     Indication: MENINGITIS BACTERIAL
     Route: 065
  2. VANCOMYCIN [Suspect]
     Indication: MENINGITIS BACTERIAL
     Route: 065
  3. CEFTRIAXONE [Suspect]
     Indication: MENINGITIS BACTERIAL
     Route: 065
  4. RIBAVIRIN [Suspect]
     Indication: PRODUCT USED FOR UNKNOWN INDICATION
     Route: 065
  5. PEGYLATED INTERFERON ALFA-2A [Concomitant]
     Indication: PRODUCT USED FOR UNKNOWN INDICATION
     Route: 058

REACTIONS (1)
  - COOMBS NEGATIVE HAEMOLYTIC ANAEMIA [None]
